FAERS Safety Report 6157259-2 (Version None)
Quarter: 2009Q2

REPORT INFORMATION
  Report Type: 
  Country: None (occurrence: None)
  Receive Date: 20090416
  Receipt Date: 20090410
  Transmission Date: 20091009
  Serious: Yes (Hospitalization, Other)
  Sender: FDA-Public Use
  Company Number: US-ASTRAZENECA-2008UW27409

PATIENT
  Age: 732 Month
  Sex: Male
  Weight: 98.9 kg

DRUGS (2)
  1. SEROQUEL [Suspect]
     Route: 048
     Dates: start: 20051201, end: 20081005
  2. LEXAPRO [Concomitant]

REACTIONS (6)
  - CARDIAC DISORDER [None]
  - DIABETES MELLITUS [None]
  - DIABETIC COMPLICATION [None]
  - HYPOAESTHESIA [None]
  - RENAL DISORDER [None]
  - RENAL FAILURE ACUTE [None]
